FAERS Safety Report 10170969 (Version 1)
Quarter: 2014Q2

REPORT INFORMATION
  Report Type: Spontaneous
  Country: US (occurrence: None)
  Receive Date: 20140512
  Receipt Date: 20140512
  Transmission Date: 20141212
  Serious: Yes (Hospitalization, Other)
  Sender: FDA-Public Use
  Company Number: 2010S1000532

PATIENT
  Age: 54 Year
  Sex: Female
  Weight: 78.56 kg

DRUGS (19)
  1. FLEET PHOSPHO-SODA ORAL SALINE LAXATIVE, GINGER-LEMON FLAVOR (ORAL SOLUTION) [Suspect]
     Indication: COLONOSCOPY
     Route: 048
     Dates: start: 200710
  2. FLEET ENEMA [Suspect]
     Indication: COLONOSCOPY
     Route: 048
     Dates: start: 20071022
  3. DULCOLAX (BISACODYL) [Suspect]
     Indication: COLONOSCOPY
     Dates: start: 20071022
  4. BUPROPION HYDROCHLORIDE [Concomitant]
  5. CARBAMIDE CREAM (UREA) [Concomitant]
  6. CODEINE/ACETAMINOPHEN (CODEINE, PARACETAMOL) [Concomitant]
  7. DIGOXIN (DIGOXIN) [Concomitant]
  8. DOCUSATE (DOCUSATE) [Concomitant]
  9. GLIPIZIDE (GLIPIZIDE) [Concomitant]
  10. HYPROMELLOSE (HYPROMELLOSE) [Concomitant]
  11. LACTULOSE SOLUTION (LACTULOSE) [Concomitant]
  12. LORATADINE (LORATADINE) [Concomitant]
  13. OMEGA 3-FATTY ACIDS (OMEGA-3 FATTY ACIDS) [Concomitant]
  14. OMEPRAZOLE (OMEPRAZOLE) [Concomitant]
  15. ROSUVASTATIN (ROSUVASTATIN) [Concomitant]
  16. TRAMADOL (TRAMADOL) [Concomitant]
  17. VERAPAMIL (VERAPAMIL) [Concomitant]
  18. LISINOPRIL AND HYDROCHLOROTHIAZIDE (HYDROCHLOROTHIAZIDE, LISINOPRIL) [Concomitant]
  19. PENICILLIN (BENZYLPENICILLIN) [Concomitant]

REACTIONS (12)
  - Diverticulitis [None]
  - Renal failure acute [None]
  - Renal failure chronic [None]
  - Acute phosphate nephropathy [None]
  - Blood phosphorus increased [None]
  - Hypovolaemia [None]
  - Diarrhoea [None]
  - Abdominal pain lower [None]
  - Large intestinal stenosis [None]
  - Palpitations [None]
  - Bladder dilatation [None]
  - Musculoskeletal pain [None]
